FAERS Safety Report 17428919 (Version 2)
Quarter: 2020Q1

REPORT INFORMATION
  Report Type: Spontaneous
  Country: US (occurrence: US)
  Receive Date: 20200218
  Receipt Date: 20200331
  Transmission Date: 20200409
  Serious: Yes (Other)
  Sender: FDA-Public Use
  Company Number: US-PFIZER INC-2020068139

PATIENT
  Age: 74 Year
  Sex: Female
  Weight: 50.8 kg

DRUGS (1)
  1. FLECTOR [Suspect]
     Active Substance: DICLOFENAC EPOLAMINE
     Indication: FIBROMYALGIA
     Dosage: 1 DF, 2X/DAY [APPLY ONE PATCH TO AFFECTED AREA EVERY 12 HOURS]

REACTIONS (10)
  - Product dose omission [Unknown]
  - Feeling abnormal [Unknown]
  - Nerve injury [Unknown]
  - Hypoaesthesia [Unknown]
  - Neuralgia [Unknown]
  - Eye infection [Unknown]
  - Off label use [Unknown]
  - Visual impairment [Unknown]
  - Product use in unapproved indication [Unknown]
  - Myofascial pain syndrome [Unknown]
